FAERS Safety Report 11031361 (Version 2)
Quarter: 2015Q2

REPORT INFORMATION
  Report Type: Spontaneous
  Country: US (occurrence: US)
  Receive Date: 20150415
  Receipt Date: 20150601
  Transmission Date: 20150821
  Serious: No
  Sender: FDA-Public Use
  Company Number: US-PFIZER INC-2015077945

PATIENT
  Age: 56 Year
  Sex: Female

DRUGS (7)
  1. FOLIC ACID. [Concomitant]
     Active Substance: FOLIC ACID
     Indication: ARTHRITIS
     Dosage: 2 TABLETS DAILY
     Dates: start: 20120208
  2. SULFASALAZINE. [Suspect]
     Active Substance: SULFASALAZINE
     Dosage: ONE TABLET (500 MG) FOUR TIMES DAILY
     Route: 048
     Dates: start: 20130621, end: 20150211
  3. SULFASALAZINE. [Suspect]
     Active Substance: SULFASALAZINE
     Dosage: ONE TABLET (500 MG) FOUR TIMES DAILY
     Route: 048
     Dates: start: 20130621, end: 20150211
  4. SULFASALAZINE. [Suspect]
     Active Substance: SULFASALAZINE
     Dosage: 500 MG; 2 TABLETS 2X/DAY
     Route: 048
  5. METHOTREXATE [Concomitant]
     Active Substance: METHOTREXATE
     Indication: ARTHRITIS
     Dosage: 8 TABLETS EACH WEEK
     Dates: start: 20110715
  6. ESTRADIOL. [Concomitant]
     Active Substance: ESTRADIOL
     Indication: HORMONE REPLACEMENT THERAPY
     Dosage: 1/2 - 1 DAILY
     Dates: start: 20121114
  7. SULFASALAZINE. [Suspect]
     Active Substance: SULFASALAZINE
     Indication: ARTHRITIS
     Dosage: 500 MG; 2 TABLETS 2X/DAY
     Route: 048
     Dates: start: 201501

REACTIONS (3)
  - Product use issue [Unknown]
  - Product odour abnormal [Unknown]
  - Abdominal discomfort [Not Recovered/Not Resolved]

NARRATIVE: CASE EVENT DATE: 20150211
